FAERS Safety Report 5579120-4 (Version None)
Quarter: 2007Q4

REPORT INFORMATION
  Report Type: 
  Country: None (occurrence: None)
  Receive Date: 20071227
  Receipt Date: 20071227
  Transmission Date: 20080405
  Serious: No
  Sender: FDA-Public Use
  Company Number: None

PATIENT

DRUGS (1)
  1. DIMETHYL SULFOXIDE [Suspect]

REACTIONS (4)
  - BURNING SENSATION [None]
  - GAIT DISTURBANCE [None]
  - MALAISE [None]
  - THYROID DISORDER [None]
